FAERS Safety Report 4817029-1 (Version None)
Quarter: 2005Q4

REPORT INFORMATION
  Report Type: 
  Country: None (occurrence: None)
  Receive Date: 20051101
  Receipt Date: 20051025
  Transmission Date: 20060501
  Serious: Yes (Death, Other)
  Sender: FDA-Public Use
  Company Number: 2005-UK-02071UK

PATIENT
  Age: 89 Year
  Sex: Female

DRUGS (9)
  1. SALBUTAMOL [Suspect]
     Route: 065
  2. SERETIDE [Suspect]
     Route: 065
  3. LACTULOSE [Suspect]
     Dosage: 300ML PER DAY
     Route: 065
  4. CODEINE PHOSPHATE AND ACETAMINOPHEN [Suspect]
     Route: 065
  5. CO-AMILOFRUSE [Suspect]
     Route: 065
  6. CALCICHEW D3 [Suspect]
     Route: 065
  7. SPIRIVA [Suspect]
     Dosage: 18MCG PER DAY
     Route: 065
  8. OXYGEN [Suspect]
     Route: 065
  9. ACTIVA [Suspect]
     Route: 065

REACTIONS (1)
  - EMPHYSEMA [None]
